FAERS Safety Report 9116122 (Version 1)
Quarter: 2013Q1

REPORT INFORMATION
  Report Type: Spontaneous
  Country: GB (occurrence: GB)
  Receive Date: 20130225
  Receipt Date: 20130225
  Transmission Date: 20140127
  Serious: Yes (Other)
  Sender: FDA-Public Use
  Company Number: GB-TEVA-386979ISR

PATIENT
  Sex: Female

DRUGS (2)
  1. BUMETANIDE [Suspect]
     Dosage: 3 MILLIGRAM DAILY;
     Route: 065
     Dates: start: 201207
  2. BUMETANIDE [Suspect]
     Dosage: REDUCED HER BUMETANIDE MEDICATION TO 1 OR 2 DOSES PER DAY

REACTIONS (3)
  - Deafness [Not Recovered/Not Resolved]
  - Tinnitus [Unknown]
  - Dizziness [Not Recovered/Not Resolved]
